FAERS Safety Report 8612672-6 (Version None)
Quarter: 2012Q3

REPORT INFORMATION
  Report Type: 
  Country: None (occurrence: None)
  Receive Date: 20120822
  Receipt Date: 20111010
  Transmission Date: 20120928
  Serious: No
  Sender: FDA-Public Use
  Company Number: US-ASTRAZENECA-2011SE57764

PATIENT
  Age: 58 Year
  Sex: Female

DRUGS (3)
  1. SYMBICORT [Suspect]
     Dosage: ONE PUFF BID
     Route: 055
  2. SYMBICORT [Suspect]
     Dosage: TWO PUFFS BID
     Route: 055
  3. PREVENATL [Concomitant]

REACTIONS (5)
  - INCORRECT DOSE ADMINISTERED [None]
  - ADVERSE EVENT [None]
  - DYSPNOEA [None]
  - INSOMNIA [None]
  - DRUG DOSE OMISSION [None]
